FAERS Safety Report 8793534 (Version 2)
Quarter: 2015Q2

REPORT INFORMATION
  Report Type: Report from Study
  Country: US (occurrence: US)
  Receive Date: 20120918
  Receipt Date: 20150629
  Transmission Date: 20150821
  Serious: Yes (Death, Hospitalization)
  Sender: FDA-Public Use
  Company Number: US-ROCHE-1126346

PATIENT
  Sex: Male
  Weight: 63.11 kg

DRUGS (9)
  1. MEGACE [Concomitant]
     Active Substance: MEGESTROL ACETATE
  2. PROCRIT [Concomitant]
     Active Substance: ERYTHROPOIETIN
  3. BABY ASPIRIN [Concomitant]
     Active Substance: ASPIRIN
  4. INTERLEUKIN 2 [Concomitant]
     Active Substance: ALDESLEUKIN
     Dosage: 10 MILLION UNITS DAILY FOR 5 DAYS EVERY OTHER WEEK
     Route: 058
  5. DECADRON [Concomitant]
     Active Substance: DEXAMETHASONE
     Route: 042
  6. AVASTIN [Suspect]
     Active Substance: BEVACIZUMAB
     Indication: MALIGNANT URINARY TRACT NEOPLASM
     Dosage: THERAPY RECEIVED DATES: 18/OCT/2005, 31/OCT/2005, 14/NOV/2005, 12/DEC/2005, 27/DEC/2005, 09/JAN/2006
     Route: 042
     Dates: start: 20050818
  7. ZOMETA [Concomitant]
     Active Substance: ZOLEDRONIC ACID
     Indication: HYPOCALCAEMIA
     Route: 042
  8. AVASTIN [Suspect]
     Active Substance: BEVACIZUMAB
     Indication: RENAL CANCER
  9. VITAMIN B12 [Concomitant]
     Active Substance: CYANOCOBALAMIN
     Route: 042

REACTIONS (18)
  - Death [Fatal]
  - Dysgeusia [Unknown]
  - Urinary incontinence [Unknown]
  - Decreased appetite [Unknown]
  - Joint swelling [Unknown]
  - Fatigue [Unknown]
  - Dyspnoea [Unknown]
  - Oedema peripheral [Unknown]
  - Asthenia [Unknown]
  - Pain [Unknown]
  - Epistaxis [Recovered/Resolved]
  - Dehydration [Unknown]
  - Disease progression [Unknown]
  - Sleep disorder [Unknown]
  - Constipation [Unknown]
  - Dyspnoea exertional [Unknown]
  - Confusional state [Unknown]
  - Dry skin [Unknown]
